FAERS Safety Report 5569806-X (Version None)
Quarter: 2007Q4

REPORT INFORMATION
  Report Type: 
  Country: None (occurrence: None)
  Receive Date: 20071218
  Receipt Date: 20071203
  Transmission Date: 20080405
  Serious: Yes (Hospitalization)
  Sender: FDA-Public Use
  Company Number: 2007S1013124

PATIENT
  Age: 68 Year
  Sex: Male

DRUGS (2)
  1. DOXYCYCLINE [Suspect]
     Indication: SINUSITIS
     Dosage: 200 MG; 4 TIMES A DAY; ORAL
     Route: 048
     Dates: start: 20061107
  2. VALPROATE SODIUM [Suspect]
     Indication: EPILEPSY
     Dosage: 300 MG; TWICE A DAY; ORAL
     Route: 048
     Dates: start: 19840604

REACTIONS (2)
  - CONVULSION [None]
  - DRUG INTERACTION [None]
